FAERS Safety Report 7293128-2 (Version None)
Quarter: 2011Q1

REPORT INFORMATION
  Report Type: 
  Country: None (occurrence: None)
  Receive Date: 20110210
  Receipt Date: 20110210
  Transmission Date: 20110831
  Serious: Yes (Hospitalization, Other)
  Sender: FDA-Public Use
  Company Number: None

PATIENT
  Age: 59 Year
  Sex: Female
  Weight: 96.6162 kg

DRUGS (1)
  1. BIAXIN [Suspect]
     Indication: SINUSITIS
     Dosage: 1 24 HOURS PO
     Route: 048
     Dates: start: 20101123, end: 20101128

REACTIONS (3)
  - DYSGEUSIA [None]
  - DIARRHOEA [None]
  - DEHYDRATION [None]
